FAERS Safety Report 19243590 (Version 1)
Quarter: 2021Q2

REPORT INFORMATION
  Report Type: Report from Study
  Country: US (occurrence: US)
  Receive Date: 20210511
  Receipt Date: 20210511
  Transmission Date: 20210717
  Serious: Yes (Hospitalization)
  Sender: FDA-Public Use
  Company Number: US-ROCHE-2825510

PATIENT
  Age: 56 Year
  Sex: Female
  Weight: 65.9 kg

DRUGS (2)
  1. OBINUTUZUMAB. [Suspect]
     Active Substance: OBINUTUZUMAB
     Indication: CHRONIC LYMPHOCYTIC LEUKAEMIA
     Dosage: 100 MG IV ON DAY 1, CYCLE 1, 900 MG IV ON DAY 2, CYCLE 1,1000 MG IV ON DAY 8, CYCLE 1 AND 1000 MG IV
     Route: 042
     Dates: start: 20200917
  2. IBRUTINIB [Suspect]
     Active Substance: IBRUTINIB
     Indication: CHRONIC LYMPHOCYTIC LEUKAEMIA
     Dosage: ON DAYS 1?28?ON 21/APR/2021, RECEIVED LAST DOSE PRIOR TO AE ONSET?TREATING PHYSICIAN ORDERED TO HOL
     Route: 048
     Dates: start: 20200917

REACTIONS (1)
  - COVID-19 [Unknown]

NARRATIVE: CASE EVENT DATE: 20210422
